FAERS Safety Report 5937159-0 (Version None)
Quarter: 2008Q4

REPORT INFORMATION
  Report Type: 
  Country: None (occurrence: None)
  Receive Date: 20081031
  Receipt Date: 20081027
  Transmission Date: 20090506
  Serious: Yes (Hospitalization)
  Sender: FDA-Public Use
  Company Number: AU-BRISTOL-MYERS SQUIBB COMPANY-14384465

PATIENT
  Age: 85 Year
  Sex: Male

DRUGS (9)
  1. IRBESARTAN [Suspect]
     Route: 048
     Dates: end: 20060709
  2. CLOPIDOGREL BISULFATE [Suspect]
     Indication: MYOCARDIAL ISCHAEMIA
     Dosage: FORMULATION - TABLET
     Route: 048
     Dates: end: 20060709
  3. DILTIAZEM HCL [Suspect]
     Indication: MYOCARDIAL ISCHAEMIA
     Route: 048
     Dates: end: 20060712
  4. FRUSEMIDE [Suspect]
     Dates: end: 20060717
  5. ESOMEPRAZOLE MAGNESIUM TRIHYDRATE [Suspect]
     Indication: OESOPHAGEAL DISORDER
     Dosage: FORMULATION - TABLET
     Route: 048
     Dates: end: 20060709
  6. PERHEXILINE MALEATE [Concomitant]
  7. SIMVASTATIN [Concomitant]
  8. NITROGLYCERIN [Concomitant]
  9. ALLOPURINOL [Concomitant]

REACTIONS (7)
  - BACK PAIN [None]
  - CHILLS [None]
  - FLANK PAIN [None]
  - HAEMATURIA [None]
  - PYREXIA [None]
  - RENAL FAILURE ACUTE [None]
  - THROMBOTIC THROMBOCYTOPENIC PURPURA [None]
